FAERS Safety Report 11168655 (Version 2)
Quarter: 2015Q2

REPORT INFORMATION
  Report Type: Spontaneous
  Country: US (occurrence: US)
  Receive Date: 20150605
  Receipt Date: 20150613
  Transmission Date: 20150821
  Serious: Yes (Hospitalization, Other)
  Sender: FDA-Public Use
  Company Number: US-APOTEX-2015AP009778

PATIENT
  Age: 25 Year
  Sex: Male

DRUGS (3)
  1. FLUOXETINE ORAL SOLUTION USP [Suspect]
     Active Substance: FLUOXETINE\FLUOXETINE HYDROCHLORIDE
     Indication: PRODUCT USED FOR UNKNOWN INDICATION
     Dosage: 80 MG, QD
     Route: 065
  2. SEVOFLURANE. [Concomitant]
     Active Substance: SEVOFLURANE
     Indication: ANAESTHESIA
     Dosage: UNK
     Route: 065
  3. METHYLENE BLUE. [Interacting]
     Active Substance: METHYLENE BLUE
     Indication: DIAGNOSTIC PROCEDURE
     Dosage: 2 DOSES
     Route: 042

REACTIONS (3)
  - Drug interaction [Recovering/Resolving]
  - Appendicitis perforated [Unknown]
  - Serotonin syndrome [Recovering/Resolving]
